FAERS Safety Report 9340498 (Version 2)
Quarter: 2013Q3

REPORT INFORMATION
  Report Type: Spontaneous
  Country: US (occurrence: US)
  Receive Date: 20130610
  Receipt Date: 20130725
  Transmission Date: 20140515
  Serious: No
  Sender: FDA-Public Use
  Company Number: US-B.I. PHARMACEUTICALS,INC./RIDGEFIELD-2013-BI-15482BP

PATIENT
  Age: 69 Year
  Sex: Female
  Weight: 136 kg

DRUGS (8)
  1. PRADAXA [Suspect]
     Indication: ATRIAL FIBRILLATION
     Dosage: 300 MG
     Route: 048
     Dates: start: 20130501
  2. PRADAXA [Suspect]
     Indication: ATRIAL FLUTTER
  3. CARTIA [Concomitant]
     Indication: ATRIAL FIBRILLATION
     Dosage: 300 MG
     Route: 048
     Dates: start: 20130528
  4. CARTIA [Concomitant]
     Indication: ATRIAL FLUTTER
  5. FLECAINIDE [Concomitant]
     Indication: ATRIAL FIBRILLATION
     Dosage: 50 MG
     Route: 048
     Dates: start: 20130528
  6. FLECAINIDE [Concomitant]
     Indication: ATRIAL FLUTTER
  7. METOPROLOL SUCCINATE [Concomitant]
     Indication: ATRIAL FIBRILLATION
     Dosage: 100 MG
     Route: 048
     Dates: start: 20130528
  8. METOPROLOL SUCCINATE [Concomitant]
     Indication: ATRIAL FLUTTER

REACTIONS (2)
  - Atrial flutter [Recovered/Resolved]
  - Atrial fibrillation [Recovered/Resolved]
